FAERS Safety Report 9175083 (Version 1)
Quarter: 2013Q1

REPORT INFORMATION
  Report Type: Report from Study
  Country: US (occurrence: US)
  Receive Date: 20130320
  Receipt Date: 20130320
  Transmission Date: 20140127
  Serious: Yes (Other)
  Sender: FDA-Public Use
  Company Number: US-ROCHE-1073584

PATIENT
  Sex: 0

DRUGS (2)
  1. BEVACIZUMAB [Suspect]
     Indication: ENDOMETRIAL CANCER
     Dosage: ON DAYS 1 AND 15 OF A 28 DAY CYCLE
     Route: 041
  2. TEMSIROLIMUS [Suspect]
     Indication: ENDOMETRIAL CANCER
     Route: 041

REACTIONS (5)
  - Duodenal perforation [Unknown]
  - Anorectal infection [Unknown]
  - Hypertension [Unknown]
  - Hyperglycaemia [Unknown]
  - Neutropenia [Unknown]
